FAERS Safety Report 24221355 (Version 1)
Quarter: 2024Q3

REPORT INFORMATION
  Report Type: Spontaneous
  Country: GB (occurrence: GB)
  Receive Date: 20240819
  Receipt Date: 20240819
  Transmission Date: 20241017
  Serious: Yes (Other)
  Sender: AUROBINDO
  Company Number: GB-MHRA-MED-202405171218264050-YSZMJ

PATIENT
  Age: 15 Year
  Sex: Female

DRUGS (1)
  1. SERTRALINE [Suspect]
     Active Substance: SERTRALINE HYDROCHLORIDE
     Indication: Adverse drug reaction
     Dosage: 50 MILLIGRAM, ONCE A DAY
     Route: 065
     Dates: start: 20240503, end: 20240508

REACTIONS (5)
  - Lip swelling [Recovering/Resolving]
  - Swelling face [Recovering/Resolving]
  - Vomiting [Unknown]
  - Rash [Recovered/Resolved]
  - Ear discomfort [Recovered/Resolved]

NARRATIVE: CASE EVENT DATE: 20240505
